FAERS Safety Report 5527424-3 (Version None)
Quarter: 2007Q4

REPORT INFORMATION
  Report Type: 
  Country: None (occurrence: None)
  Receive Date: 20071123
  Receipt Date: 20071115
  Transmission Date: 20080405
  Serious: Yes (Hospitalization)
  Sender: FDA-Public Use
  Company Number: 020613

PATIENT
  Age: 53 Year
  Sex: Female

DRUGS (3)
  1. WARFARIN SODIUM [Suspect]
     Indication: THROMBOSIS PROPHYLAXIS
     Dosage: 62.5 MG, WEEKLY, ORAL
     Route: 048
     Dates: start: 20010101
  2. VYTORIN [Concomitant]
  3. ACTONEL [Concomitant]

REACTIONS (2)
  - CEREBROVASCULAR ACCIDENT [None]
  - INTERNATIONAL NORMALISED RATIO DECREASED [None]
